FAERS Safety Report 9482380 (Version 1)
Quarter: 2013Q3

REPORT INFORMATION
  Report Type: Spontaneous
  Country: US (occurrence: US)
  Receive Date: 20130828
  Receipt Date: 20130828
  Transmission Date: 20140515
  Serious: No
  Sender: FDA-Public Use
  Company Number: US-SANOFI-AVENTIS-2013SA025702

PATIENT
  Age: 7 Year
  Sex: Female

DRUGS (1)
  1. SKLICE [Suspect]
     Indication: LICE INFESTATION
     Dosage: 0.5% LOTION
     Route: 065
     Dates: start: 20130130, end: 20130130

REACTIONS (2)
  - Pruritus [Recovered/Resolved]
  - Drug ineffective [Unknown]
